FAERS Safety Report 8858658 (Version 2)
Quarter: 2012Q4

REPORT INFORMATION
  Report Type: 
  Country: US (occurrence: US)
  Receive Date: 20121024
  Receipt Date: 20121107
  Transmission Date: 20130627
  Serious: Yes (Death, Other)
  Sender: FDA-Public Use
  Company Number: US-B.I. PHARMACEUTICALS,INC./RIDGEFIELD-2012-BP-26277BP

PATIENT
  Age: 86 None
  Sex: Male

DRUGS (2)
  1. SPIRIVA [Suspect]
     Indication: EMPHYSEMA
     Dosage: 18 mcg
     Route: 055
     Dates: start: 2005
  2. CARDIAC MEDICATION [Concomitant]

REACTIONS (3)
  - Cardiac failure congestive [Fatal]
  - Pulmonary thrombosis [Unknown]
  - Fungal infection [Unknown]
